FAERS Safety Report 18494175 (Version 5)
Quarter: 2024Q1

REPORT INFORMATION
  Report Type: Report from Study
  Country: DE (occurrence: DE)
  Receive Date: 20201111
  Receipt Date: 20240122
  Transmission Date: 20240409
  Serious: Yes (Hospitalization, Other)
  Sender: FDA-Public Use
  Company Number: DE-TAKEDA-2020TUS047068

PATIENT
  Age: 40 Year
  Sex: Female

DRUGS (17)
  1. TEDUGLUTIDE [Suspect]
     Active Substance: TEDUGLUTIDE
     Indication: Short-bowel syndrome
     Dosage: 2.25 MILLIGRAM, QD
     Route: 042
     Dates: start: 20150410, end: 20230509
  2. TEDUGLUTIDE [Suspect]
     Active Substance: TEDUGLUTIDE
     Indication: Short-bowel syndrome
     Dosage: 2.25 MILLIGRAM, QD
     Route: 042
     Dates: start: 20150410, end: 20230509
  3. TEDUGLUTIDE [Suspect]
     Active Substance: TEDUGLUTIDE
     Indication: Short-bowel syndrome
     Dosage: 2.25 MILLIGRAM, QD
     Route: 042
     Dates: start: 20150410, end: 20230509
  4. TEDUGLUTIDE [Suspect]
     Active Substance: TEDUGLUTIDE
     Indication: Short-bowel syndrome
     Dosage: 2.25 MILLIGRAM, QD
     Route: 042
     Dates: start: 20150410, end: 20230509
  5. TEDUGLUTIDE [Suspect]
     Active Substance: TEDUGLUTIDE
     Dosage: 2.25 MILLIGRAM, 4/WEEK
     Route: 042
     Dates: start: 20230510
  6. TEDUGLUTIDE [Suspect]
     Active Substance: TEDUGLUTIDE
     Dosage: 2.25 MILLIGRAM, 4/WEEK
     Route: 042
     Dates: start: 20230510
  7. TEDUGLUTIDE [Suspect]
     Active Substance: TEDUGLUTIDE
     Dosage: 2.25 MILLIGRAM, 4/WEEK
     Route: 042
     Dates: start: 20230510
  8. TEDUGLUTIDE [Suspect]
     Active Substance: TEDUGLUTIDE
     Dosage: 2.25 MILLIGRAM, 4/WEEK
     Route: 042
     Dates: start: 20230510
  9. RIFAXIMIN [Concomitant]
     Active Substance: RIFAXIMIN
     Indication: Diarrhoea
     Dosage: 400 MILLIGRAM, BID
     Route: 048
     Dates: start: 201902
  10. OPIUM TINCTURE [Concomitant]
     Active Substance: MORPHINE
     Indication: Colitis
     Dosage: 100 MILLIGRAM
     Route: 048
     Dates: start: 201511, end: 201701
  11. OPIUM TINCTURE [Concomitant]
     Active Substance: MORPHINE
     Dosage: 200 MILLIGRAM
     Route: 048
     Dates: start: 201701
  12. POSTERISAN AKUT [Concomitant]
     Indication: Haemorrhoids
     Dosage: 50 MILLIGRAM
     Route: 062
     Dates: start: 201902
  13. IMDEVIMAB [Concomitant]
     Active Substance: IMDEVIMAB
     Indication: COVID-19
     Dosage: UNK
     Route: 065
     Dates: start: 20211210, end: 202112
  14. FERROUS GLUCONATE [Concomitant]
     Active Substance: FERROUS GLUCONATE
     Indication: Mineral supplementation
     Dosage: 100 MILLIGRAM, BID
     Route: 048
     Dates: start: 2021, end: 2022
  15. CHOLECALCIFEROL [Concomitant]
     Active Substance: CHOLECALCIFEROL
     Indication: Vitamin D deficiency
     Dosage: UNK UNK, QD
     Route: 048
     Dates: start: 2021, end: 2022
  16. FENTANYL [Concomitant]
     Active Substance: FENTANYL\FENTANYL CITRATE
     Indication: Colitis
     Dosage: UNK
     Route: 061
     Dates: start: 2021, end: 2022
  17. CYANOCOBALAMIN [Concomitant]
     Active Substance: CYANOCOBALAMIN
     Indication: Vitamin supplementation
     Dosage: 1000 MICROGRAM, QD
     Route: 048
     Dates: start: 2021, end: 2022

REACTIONS (2)
  - Device defective [Recovered/Resolved]
  - Nasopharyngitis [Recovered/Resolved]

NARRATIVE: CASE EVENT DATE: 20200301
